FAERS Safety Report 25586297 (Version 1)
Quarter: 2025Q3

REPORT INFORMATION
  Report Type: Spontaneous
  Country: US (occurrence: US)
  Receive Date: 20250721
  Receipt Date: 20250721
  Transmission Date: 20251021
  Serious: Yes (Hospitalization, Other)
  Sender: ELI LILLY AND COMPANY
  Company Number: US-ELI_LILLY_AND_COMPANY-US202507006823

PATIENT
  Sex: Female

DRUGS (12)
  1. ABEMACICLIB [Suspect]
     Active Substance: ABEMACICLIB
     Indication: Meningioma
     Dosage: 200 MG, BID
     Route: 065
     Dates: start: 202107
  2. ABEMACICLIB [Suspect]
     Active Substance: ABEMACICLIB
     Dosage: 200 MG, BID
     Route: 065
     Dates: start: 202209
  3. CHLOROQUINE [Suspect]
     Active Substance: CHLOROQUINE
     Indication: Meningioma
     Dosage: 250 MG, DAILY
     Route: 065
     Dates: end: 202208
  4. CHLOROQUINE [Suspect]
     Active Substance: CHLOROQUINE
     Dosage: 250 MG, DAILY
     Route: 065
     Dates: start: 202209, end: 202309
  5. CHLOROQUINE [Suspect]
     Active Substance: CHLOROQUINE
     Dosage: 250 MG, DAILY
     Route: 065
     Dates: start: 202311
  6. VALPROATE [Suspect]
     Active Substance: VALPROIC ACID
     Indication: Meningioma
     Route: 065
     Dates: start: 202112, end: 202207
  7. DISULFIRAM [Suspect]
     Active Substance: DISULFIRAM
     Indication: Meningioma
     Route: 065
     Dates: start: 202207, end: 202208
  8. DISULFIRAM [Suspect]
     Active Substance: DISULFIRAM
     Route: 065
     Dates: start: 202209, end: 202309
  9. DISULFIRAM [Suspect]
     Active Substance: DISULFIRAM
     Route: 065
     Dates: start: 202311
  10. COPPER [Suspect]
     Active Substance: COPPER
     Indication: Meningioma
     Route: 065
     Dates: start: 202207, end: 202208
  11. COPPER [Suspect]
     Active Substance: COPPER
     Route: 065
     Dates: start: 202209, end: 202309
  12. COPPER [Suspect]
     Active Substance: COPPER
     Route: 065
     Dates: start: 202311

REACTIONS (12)
  - Hydrocephalus [Unknown]
  - Pneumonia aspiration [Unknown]
  - Urinary tract infection [Unknown]
  - Malignant neoplasm progression [Unknown]
  - Neuropathy peripheral [Unknown]
  - Diplopia [Unknown]
  - Off label use [Unknown]
  - Malignant neoplasm progression [Unknown]
  - Alopecia [Unknown]
  - Malignant neoplasm progression [Recovering/Resolving]
  - Discomfort [Unknown]
  - Nausea [Unknown]

NARRATIVE: CASE EVENT DATE: 20210701
